FAERS Safety Report 9847784 (Version 1)
Quarter: 2014Q1

REPORT INFORMATION
  Report Type: Spontaneous
  Country: US (occurrence: US)
  Receive Date: 20140128
  Receipt Date: 20140128
  Transmission Date: 20141002
  Serious: No
  Sender: FDA-Public Use
  Company Number: US-BIOGENIDEC-2014BI006521

PATIENT
  Age: 54 Year
  Sex: Female
  Weight: 81 kg

DRUGS (1)
  1. TECFIDERA [Suspect]
     Indication: MULTIPLE SCLEROSIS
     Route: 048
     Dates: start: 20131104, end: 20131218

REACTIONS (5)
  - Feeling jittery [Recovered/Resolved]
  - Dizziness [Unknown]
  - Gastric disorder [Unknown]
  - Irritability [Unknown]
  - Abdominal discomfort [Unknown]
